FAERS Safety Report 9701503 (Version 2)
Quarter: 2013Q4

REPORT INFORMATION
  Report Type: Spontaneous
  Country: US (occurrence: US)
  Receive Date: 20131121
  Receipt Date: 20131121
  Transmission Date: 20140711
  Serious: No
  Sender: FDA-Public Use
  Company Number: US-MYLANLABS-2013S1015090

PATIENT
  Age: 76 Year
  Sex: Male
  Weight: 72.8 kg

DRUGS (7)
  1. AMIODARONE HYDROCHLORIDE INJECTION [Suspect]
     Indication: SUPRAVENTRICULAR TACHYCARDIA
     Route: 042
     Dates: start: 20130630, end: 20130702
  2. AMIODARONE HYDROCHLORIDE INJECTION [Suspect]
     Indication: ATRIAL FIBRILLATION
     Route: 042
     Dates: start: 20130630, end: 20130702
  3. FUROSEMIDE [Concomitant]
  4. LEVOFLOXACIN [Concomitant]
  5. FAMOTIDINE [Concomitant]
  6. NICODERM [Concomitant]
     Route: 062
  7. ROPINIROLE [Concomitant]

REACTIONS (1)
  - Injection site extravasation [Not Recovered/Not Resolved]
